FAERS Safety Report 19879419 (Version 1)
Quarter: 2021Q3

REPORT INFORMATION
  Report Type: Spontaneous
  Country: US (occurrence: US)
  Receive Date: 20210924
  Receipt Date: 20210924
  Transmission Date: 20211014
  Serious: No
  Sender: FDA-Public Use
  Company Number: US-ASTRAZENECA-2021A722431

PATIENT
  Sex: Female
  Weight: 113.4 kg

DRUGS (4)
  1. BASAGLAR [Concomitant]
     Active Substance: INSULIN GLARGINE
     Dosage: 60?65 UNITS AT NIGHT
  2. BYDUREON BCISE [Suspect]
     Active Substance: EXENATIDE
     Indication: TYPE 2 DIABETES MELLITUS
     Dosage: ONCE A WEEK
     Route: 065
  3. FARXIGA [Suspect]
     Active Substance: DAPAGLIFLOZIN PROPANEDIOL
     Indication: TYPE 2 DIABETES MELLITUS
     Route: 048
  4. GLUOCPHAGE [Concomitant]

REACTIONS (5)
  - Blood glucose abnormal [Unknown]
  - Device malfunction [Unknown]
  - Incorrect dose administered by device [Unknown]
  - Glycosylated haemoglobin [Unknown]
  - Weight decreased [Unknown]
